FAERS Safety Report 14412570 (Version 1)
Quarter: 2018Q1

REPORT INFORMATION
  Report Type: Spontaneous
  Country: US (occurrence: US)
  Receive Date: 20180118
  Receipt Date: 20180118
  Transmission Date: 20180509
  Serious: Yes (Hospitalization, Other)
  Sender: FDA-Public Use
  Company Number: None

PATIENT
  Age: 4 Week
  Sex: Male
  Weight: 3.9 kg

DRUGS (2)
  1. BUPIVACAINE. [Concomitant]
     Active Substance: BUPIVACAINE
  2. OFIRMEV [Suspect]
     Active Substance: ACETAMINOPHEN
     Indication: PAIN
     Dosage: ?          OTHER FREQUENCY:Q6H;?
     Route: 040
     Dates: start: 20170912, end: 20170912

REACTIONS (2)
  - Incorrect dose administered [None]
  - Drug dispensing error [None]

NARRATIVE: CASE EVENT DATE: 20170912
